FAERS Safety Report 9779941 (Version 2)
Quarter: 2014Q1

REPORT INFORMATION
  Report Type: Spontaneous
  Country: US (occurrence: US)
  Receive Date: 20131223
  Receipt Date: 20140303
  Transmission Date: 20141002
  Serious: Yes (Other)
  Sender: FDA-Public Use
  Company Number: US-TEVA-451887USA

PATIENT
  Age: 48 Year
  Sex: Female
  Weight: 111.23 kg

DRUGS (4)
  1. PROAIR HFA [Suspect]
     Indication: ASTHMA
     Dosage: 2 PUFFS DAILY OR AS NEEDED
     Dates: start: 20131022
  2. HYZAAR [Concomitant]
     Indication: HYPERTENSION
  3. ADVAIR [Concomitant]
     Indication: ASTHMA
  4. MONTELUKAST [Concomitant]
     Indication: ASTHMA

REACTIONS (5)
  - Hypertension [Not Recovered/Not Resolved]
  - Dyspnoea [Not Recovered/Not Resolved]
  - Wheezing [Not Recovered/Not Resolved]
  - Dysphonia [Not Recovered/Not Resolved]
  - Cough [Not Recovered/Not Resolved]
